FAERS Safety Report 10021428 (Version 1)
Quarter: 2014Q1

REPORT INFORMATION
  Report Type: Spontaneous
  Country: DK (occurrence: CH)
  Receive Date: 20140319
  Receipt Date: 20140319
  Transmission Date: 20141002
  Serious: Yes (Other)
  Sender: FDA-Public Use
  Company Number: CH-FRI-1000064778

PATIENT
  Sex: Female
  Weight: 2.14 kg

DRUGS (2)
  1. ESCITALOPRAM [Suspect]
     Dosage: 20 MG
     Route: 064
     Dates: start: 20130410, end: 2013
  2. ESCITALOPRAM [Suspect]
     Dosage: 10 MG
     Route: 064
     Dates: start: 2013, end: 2013

REACTIONS (2)
  - Foetal growth restriction [Unknown]
  - Foetal exposure during pregnancy [Recovered/Resolved]
